FAERS Safety Report 13928640 (Version 1)
Quarter: 2017Q3

REPORT INFORMATION
  Report Type: Spontaneous
  Country: US (occurrence: None)
  Receive Date: 20170831
  Receipt Date: 20170831
  Transmission Date: 20171127
  Serious: No
  Sender: FDA-Public Use
  Company Number: None

PATIENT
  Age: 48 Year
  Sex: Male

DRUGS (1)
  1. STRIBILD [Suspect]
     Active Substance: COBICISTAT\ELVITEGRAVIR\EMTRICITABINE\TENOFOVIR DISOPROXIL FUMARATE

REACTIONS (6)
  - Headache [None]
  - Myalgia [None]
  - Asthenia [None]
  - Muscular weakness [None]
  - Feeling cold [None]
  - Fatigue [None]

NARRATIVE: CASE EVENT DATE: 20170831
